FAERS Safety Report 4410506-7 (Version None)
Quarter: 2004Q3

REPORT INFORMATION
  Report Type: 
  Country: None (occurrence: None)
  Receive Date: 20040726
  Receipt Date: 20040714
  Transmission Date: 20050211
  Serious: Yes (Other)
  Sender: FDA-Public Use
  Company Number: BR-JNJFOC-20040704769

PATIENT
  Sex: Female

DRUGS (4)
  1. HALDOL [Suspect]
     Indication: NERVOUSNESS
     Dosage: SEE IMAGE
     Route: 048
     Dates: start: 20040601
  2. NOCICLIN (ETHYINYLESTRADIOL) [Concomitant]
  3. DIAZEPAM MG (DIAZEPAM) [Concomitant]
  4. PROMETHAZINE [Concomitant]

REACTIONS (5)
  - AGGRESSION [None]
  - NERVOUSNESS [None]
  - OVERDOSE [None]
  - SOMNOLENCE [None]
  - SUICIDE ATTEMPT [None]
